FAERS Safety Report 20091474 (Version 1)
Quarter: 2021Q4

REPORT INFORMATION
  Report Type: Spontaneous
  Country: US (occurrence: None)
  Receive Date: 20211119
  Receipt Date: 20211119
  Transmission Date: 20220304
  Serious: Yes (Hospitalization)
  Sender: FDA-Public Use
  Company Number: None

PATIENT
  Age: 72 Year
  Sex: Male

DRUGS (1)
  1. HYDRALAZINE HYDROCHLORIDE [Suspect]
     Active Substance: HYDRALAZINE HYDROCHLORIDE
     Indication: Hypertension
     Dates: start: 20200920, end: 20210622

REACTIONS (6)
  - Chest pain [None]
  - Lupus-like syndrome [None]
  - Heart rate decreased [None]
  - Orthostatic hypotension [None]
  - Haemoglobin decreased [None]
  - Folate deficiency [None]

NARRATIVE: CASE EVENT DATE: 20210818
